FAERS Safety Report 8684247 (Version 2)
Quarter: 2013Q4

REPORT INFORMATION
  Report Type: Spontaneous
  Country: RU (occurrence: RU)
  Receive Date: 20120726
  Receipt Date: 20131108
  Transmission Date: 20140711
  Serious: Yes (Other)
  Sender: FDA-Public Use
  Company Number: RU-009507513-1207RUS007085

PATIENT
  Age: 35 Year
  Sex: Female

DRUGS (2)
  1. NUVARING [Suspect]
     Indication: STEVENS-JOHNSON SYNDROME
     Route: 067
  2. FEMOSTON [Suspect]

REACTIONS (2)
  - Stevens-Johnson syndrome [Recovered/Resolved]
  - Therapeutic response unexpected [Recovered/Resolved]
